FAERS Safety Report 5850045-X (Version None)
Quarter: 2008Q3

REPORT INFORMATION
  Report Type: 
  Country: None (occurrence: None)
  Receive Date: 20080731
  Receipt Date: 20080407
  Transmission Date: 20090109
  Serious: No
  Sender: FDA-Public Use
  Company Number: US200804001876

PATIENT
  Age: 46 Year
  Sex: Male

DRUGS (3)
  1. BYETTA [Suspect]
     Indication: TYPE 2 DIABETES MELLITUS
     Dosage: 5 UG, 2/D, SUBCUTANEOUS; 10 UG 2/D SUBCUTANEOUS
     Route: 058
     Dates: start: 20071101, end: 20080201
  2. BYETTA [Suspect]
     Indication: TYPE 2 DIABETES MELLITUS
     Dosage: 5 UG, 2/D, SUBCUTANEOUS; 10 UG 2/D SUBCUTANEOUS
     Route: 058
     Dates: start: 20080201
  3. GLIPIZIDE [Concomitant]

REACTIONS (8)
  - ABDOMINAL PAIN UPPER [None]
  - BLOOD GLUCOSE DECREASED [None]
  - BLOOD GLUCOSE INCREASED [None]
  - DIARRHOEA [None]
  - FEELING ABNORMAL [None]
  - NAUSEA [None]
  - TREMOR [None]
  - WEIGHT DECREASED [None]
